FAERS Safety Report 12084315 (Version 1)
Quarter: 2016Q1

REPORT INFORMATION
  Report Type: Spontaneous
  Country: US (occurrence: None)
  Receive Date: 20160216
  Receipt Date: 20160216
  Transmission Date: 20160526
  Serious: Yes (Hospitalization)
  Sender: FDA-Public Use
  Company Number: None

PATIENT
  Age: 38 Year
  Sex: Male
  Weight: 92.99 kg

DRUGS (3)
  1. SUBOXONE [Concomitant]
     Active Substance: BUPRENORPHINE HYDROCHLORIDE\NALOXONE HYDROCHLORIDE
  2. ADDERALL [Suspect]
     Active Substance: AMPHETAMINE ASPARTATE\AMPHETAMINE SULFATE\DEXTROAMPHETAMINE SACCHARATE\DEXTROAMPHETAMINE SULFATE
     Indication: ATTENTION DEFICIT/HYPERACTIVITY DISORDER
     Dosage: 2 PILLS?TWICE DAILY?TAKEN BY MOUTH
     Route: 048
     Dates: start: 20160210, end: 20160215
  3. WELLBUTRIN XL [Concomitant]
     Active Substance: BUPROPION HYDROCHLORIDE

REACTIONS (9)
  - Fall [None]
  - Sensory disturbance [None]
  - Product quality issue [None]
  - Paraesthesia [None]
  - Peripheral coldness [None]
  - Product substitution issue [None]
  - Poor peripheral circulation [None]
  - Lung disorder [None]
  - Dyspnoea [None]

NARRATIVE: CASE EVENT DATE: 20160122
